FAERS Safety Report 6141385-8 (Version None)
Quarter: 2009Q2

REPORT INFORMATION
  Report Type: 
  Country: None (occurrence: None)
  Receive Date: 20090402
  Receipt Date: 20090324
  Transmission Date: 20091009
  Serious: Yes (Other)
  Sender: FDA-Public Use
  Company Number: US-ROCHE-573070

PATIENT
  Age: 76 Year
  Sex: Female

DRUGS (1)
  1. BONIVA [Suspect]
     Indication: OSTEOPOROSIS
     Route: 048
     Dates: start: 20051012, end: 20080401

REACTIONS (14)
  - DRUG HYPERSENSITIVITY [None]
  - DYSGEUSIA [None]
  - DYSPHAGIA [None]
  - EYELID OPERATION [None]
  - GINGIVAL PAIN [None]
  - HERNIA [None]
  - MILK ALLERGY [None]
  - ORAL MUCOSAL ERYTHEMA [None]
  - ORAL PAIN [None]
  - PAIN [None]
  - PAIN IN JAW [None]
  - TOOTHACHE [None]
  - TRICHIASIS [None]
  - WEIGHT DECREASED [None]
